FAERS Safety Report 8124916-8 (Version None)
Quarter: 2012Q1

REPORT INFORMATION
  Report Type: 
  Country: None (occurrence: None)
  Receive Date: 20120209
  Receipt Date: 20120130
  Transmission Date: 20120608
  Serious: Yes (Death)
  Sender: FDA-Public Use
  Company Number: US-ASTELLAS-2011US002711

PATIENT
  Sex: Male
  Weight: 89 kg

DRUGS (47)
  1. PROGRAF [Suspect]
     Dosage: 1 MG, BID
     Route: 048
     Dates: start: 20091125, end: 20091223
  2. PROGRAF [Suspect]
     Dosage: 3 MG, BID
     Route: 048
     Dates: start: 20100205, end: 20100218
  3. TACROLIMUS [Suspect]
     Dosage: 7 MG, BID
     Route: 065
     Dates: start: 20110119, end: 20110131
  4. TACROLIMUS [Suspect]
     Dosage: 10 MG, BID
     Route: 065
     Dates: start: 20110427
  5. PROGRAF [Suspect]
     Dosage: 2 MG, BID
     Route: 048
     Dates: start: 20090829, end: 20090930
  6. PROGRAF [Suspect]
     Dosage: 1 MG AM AND 1.5 MG PM
     Route: 048
     Dates: start: 20100225, end: 20100318
  7. PROGRAF [Suspect]
     Dosage: 2 MG, BID
     Route: 048
     Dates: start: 20100521, end: 20100528
  8. PROGRAF [Suspect]
     Dosage: 5 MG, BID
     Route: 048
     Dates: start: 20100609, end: 20100804
  9. PROGRAF [Suspect]
     Dosage: 7.5 MG, BID
     Route: 048
     Dates: start: 20110404, end: 20110421
  10. TACROLIMUS [Suspect]
     Dosage: 7 MG AM AND 7.5 MG PM
     Route: 065
     Dates: start: 20110131, end: 20110404
  11. PROGRAF [Suspect]
     Dosage: 1 MG AM AND 1.5 MG PM
     Route: 048
     Dates: start: 20090819, end: 20090826
  12. PROGRAF [Suspect]
     Dosage: 4 MG, BID
     Route: 048
     Dates: start: 20091230, end: 20100106
  13. PROGRAF [Suspect]
     Dosage: 1 MG, BID
     Route: 048
     Dates: start: 20100318, end: 20100521
  14. TACROLIMUS [Suspect]
     Indication: LUNG TRANSPLANT
     Dosage: 5.5 MG, BID
     Route: 065
     Dates: start: 20100811, end: 20100812
  15. TACROLIMUS [Suspect]
     Dosage: 6 MG, BID
     Route: 065
     Dates: start: 20100819, end: 20100927
  16. TACROLIMUS [Suspect]
     Dosage: 5 MG, BID
     Route: 065
     Dates: start: 20110420, end: 20110505
  17. IMURAN [Concomitant]
     Dosage: 50 MG, UID/QD
     Dates: start: 20090209, end: 20090420
  18. PROGRAF [Suspect]
     Dosage: 2 MG, BID
     Route: 048
     Dates: start: 20091113, end: 20091118
  19. PROGRAF [Suspect]
     Dosage: 2 MG AM AND 2.5 MG PM
     Route: 048
     Dates: start: 20091223, end: 20091223
  20. PROGRAF [Suspect]
     Dosage: 2 MG, BID
     Route: 048
     Dates: start: 20091223, end: 20091230
  21. PROGRAF [Suspect]
     Dosage: 5.5 MG, BID
     Route: 048
     Dates: start: 20100811, end: 20100819
  22. NEUPOGEN [Concomitant]
     Dosage: 300 UG, BID
     Route: 058
     Dates: start: 20091228, end: 20100104
  23. AVODART [Concomitant]
     Indication: PRODUCT USED FOR UNKNOWN INDICATION
     Dosage: 0.5 MG, UID/QD
     Route: 065
     Dates: start: 20081204, end: 20090420
  24. PROGRAF [Suspect]
     Indication: LUNG TRANSPLANT
     Dosage: UNK MG, UNKNOWN/D
     Route: 048
     Dates: start: 20090416
  25. PROGRAF [Suspect]
     Dosage: 1.5 MG, BID
     Route: 048
     Dates: start: 20090826, end: 20090901
  26. PROGRAF [Suspect]
     Dosage: 2 MG AM AND 1 MG PM
     Route: 048
     Dates: start: 20091118, end: 20091201
  27. PROGRAF [Suspect]
     Dosage: 1 MG, BID
     Route: 048
     Dates: start: 20100818, end: 20100818
  28. IMURAN [Concomitant]
     Indication: PRODUCT USED FOR UNKNOWN INDICATION
     Dosage: 100 MG, UID/QD
     Route: 065
     Dates: start: 20081204, end: 20090209
  29. NEUPOGEN [Concomitant]
     Dosage: 300 UG, TID
     Route: 058
     Dates: start: 20090720, end: 20091019
  30. PREDNISONE [Concomitant]
     Dosage: 5 MG, UID/QD
     Route: 065
     Dates: start: 20090521
  31. PROGRAF [Suspect]
     Dosage: 1 MG AM AND 1.5 MG PM
     Route: 048
     Dates: start: 20090521, end: 20090610
  32. PROGRAF [Suspect]
     Dosage: 1.5 MG AM AND 2 MG PM
     Route: 048
     Dates: start: 20090629, end: 20090731
  33. PROGRAF [Suspect]
     Dosage: 1.5 MG, BID
     Route: 048
     Dates: start: 20090731, end: 20090819
  34. PROGRAF [Suspect]
     Dosage: 7 MG, BID
     Route: 048
     Dates: start: 20100106, end: 20100205
  35. PROGRAF [Suspect]
     Dosage: 1.5 MG, BID
     Route: 048
     Dates: start: 20100218, end: 20100225
  36. NEUPOGEN [Concomitant]
     Indication: PRODUCT USED FOR UNKNOWN INDICATION
     Dosage: 300 UG, UID/QD
     Route: 058
     Dates: start: 20090608, end: 20090720
  37. PREDNISONE [Concomitant]
     Dosage: 20 MG, QOD
     Route: 065
     Dates: start: 20081204, end: 20090420
  38. PROGRAF [Suspect]
     Dosage: 1.5 MG, BID
     Route: 048
     Dates: start: 20090610, end: 20090629
  39. PROGRAF [Suspect]
     Dosage: 20 MG, UID/QD
     Route: 048
     Dates: end: 20110512
  40. TACROLIMUS [Suspect]
     Dosage: 6 MG, BID
     Route: 065
     Dates: start: 20101008, end: 20110120
  41. PREDNISONE [Concomitant]
     Indication: PRODUCT USED FOR UNKNOWN INDICATION
     Dosage: 10 MG, QOD
     Route: 065
     Dates: start: 20081204, end: 20090420
  42. PROGRAF [Suspect]
     Dosage: 1.5 MG AM AND 2 MG PM
     Route: 048
     Dates: start: 20090930, end: 20091113
  43. PROGRAF [Suspect]
     Dosage: 3 MG, BID
     Route: 048
     Dates: start: 20100528, end: 20100604
  44. PROGRAF [Suspect]
     Dosage: 3.5 MG, BID
     Route: 048
     Dates: start: 20100604, end: 20100609
  45. PROGRAF [Suspect]
     Dosage: 5.5 MG AM AND 6 MG PM
     Route: 048
     Dates: start: 20100804, end: 20100812
  46. TACROLIMUS [Suspect]
     Dosage: 5.5 MG AM AND 6 MG PM
     Route: 065
     Dates: start: 20100927, end: 20101012
  47. NEUPOGEN [Concomitant]
     Dosage: 300 UG, UID/QD
     Route: 058
     Dates: start: 20091221, end: 20091228

REACTIONS (3)
  - LUNG NEOPLASM MALIGNANT [None]
  - NEOPLASM PROGRESSION [None]
  - OFF LABEL USE [None]
